FAERS Safety Report 10265404 (Version 1)
Quarter: 2014Q2

REPORT INFORMATION
  Report Type: Other
  Country: GB (occurrence: GB)
  Receive Date: 20140627
  Receipt Date: 20140627
  Transmission Date: 20141212
  Serious: Yes (Hospitalization, Disabling, Other)
  Sender: FDA-Public Use
  Company Number: GB-PERRIGO-14GB006295

PATIENT
  Age: 36 Year
  Sex: Female
  Weight: 57.15 kg

DRUGS (21)
  1. CETIRIZINE HYDROCHLORIDE 16208/0067 10 MG [Suspect]
     Indication: ANXIETY
     Dosage: 10 MG, UNK
     Route: 048
  2. CETIRIZINE HYDROCHLORIDE 16208/0067 10 MG [Suspect]
     Indication: DEPRESSION
  3. MIRTAZAPINE [Suspect]
     Indication: ANXIETY
     Dosage: 30 MG, UNK
     Route: 048
  4. MIRTAZAPINE [Suspect]
     Indication: DEPRESSION
  5. SERTRALINE [Suspect]
     Indication: ANXIETY
     Dosage: 50 MG, UNK
     Route: 048
  6. SERTRALINE [Suspect]
     Indication: DEPRESSION
  7. TRAMADOL [Suspect]
     Indication: ANXIETY
     Route: 065
  8. TRAMADOL [Suspect]
     Indication: DEPRESSION
  9. ACICLOVIR [Concomitant]
     Indication: PRODUCT USED FOR UNKNOWN INDICATION
     Route: 065
  10. BUCCASTEM [Concomitant]
     Indication: PRODUCT USED FOR UNKNOWN INDICATION
     Route: 065
  11. CLARITHROMYCIN [Concomitant]
     Indication: PRODUCT USED FOR UNKNOWN INDICATION
     Route: 065
  12. CLOZAPINE [Concomitant]
     Indication: INSOMNIA
     Route: 065
  13. FOSTAIR [Concomitant]
     Indication: PRODUCT USED FOR UNKNOWN INDICATION
     Route: 065
  14. LACTULOSE [Concomitant]
     Indication: PRODUCT USED FOR UNKNOWN INDICATION
     Route: 065
  15. LORAZEPAM [Concomitant]
     Indication: PRODUCT USED FOR UNKNOWN INDICATION
     Route: 065
  16. PARACETAMOL [Concomitant]
     Indication: PRODUCT USED FOR UNKNOWN INDICATION
     Route: 065
  17. PREDNISOLONE [Concomitant]
     Indication: PRODUCT USED FOR UNKNOWN INDICATION
     Route: 065
  18. SALBUTAMOL [Concomitant]
     Indication: PRODUCT USED FOR UNKNOWN INDICATION
     Route: 065
  19. SENNA                              /00142201/ [Concomitant]
     Indication: PRODUCT USED FOR UNKNOWN INDICATION
     Route: 065
  20. VENLAFAXINE [Concomitant]
     Indication: PRODUCT USED FOR UNKNOWN INDICATION
     Route: 065
  21. ANTIBIOTICS [Concomitant]
     Indication: PRODUCT USED FOR UNKNOWN INDICATION
     Route: 065

REACTIONS (25)
  - Faecal incontinence [Unknown]
  - Contusion [Not Recovered/Not Resolved]
  - Dizziness [Not Recovered/Not Resolved]
  - Paraesthesia [Unknown]
  - Asthenia [Unknown]
  - Energy increased [Unknown]
  - Fall [Unknown]
  - Fatigue [Not Recovered/Not Resolved]
  - Feeling drunk [Unknown]
  - Convulsion [Not Recovered/Not Resolved]
  - Headache [Unknown]
  - Joint stiffness [Not Recovered/Not Resolved]
  - Loss of consciousness [Not Recovered/Not Resolved]
  - Memory impairment [Unknown]
  - Pain [Not Recovered/Not Resolved]
  - Erythema [Not Recovered/Not Resolved]
  - Sleep disorder [Unknown]
  - Tremor [Not Recovered/Not Resolved]
  - Urinary tract infection [Not Recovered/Not Resolved]
  - Visual impairment [Unknown]
  - Weight decreased [Not Recovered/Not Resolved]
  - Asthenia [Unknown]
  - Dysarthria [Unknown]
  - Confusional state [Unknown]
  - Memory impairment [Unknown]
